FAERS Safety Report 9261463 (Version 1)
Quarter: 2013Q2

REPORT INFORMATION
  Report Type: Spontaneous
  Country: US (occurrence: US)
  Receive Date: 20130429
  Receipt Date: 20130429
  Transmission Date: 20140414
  Serious: Yes (Hospitalization)
  Sender: FDA-Public Use
  Company Number: US-BRISTOL-MYERS SQUIBB COMPANY-18811273

PATIENT
  Sex: Male

DRUGS (1)
  1. BYETTA [Suspect]

REACTIONS (5)
  - Bacterial infection [Unknown]
  - Blood glucose increased [Unknown]
  - Acne [Unknown]
  - Eating disorder [Unknown]
  - Vomiting [Unknown]
